FAERS Safety Report 20826017 (Version 1)
Quarter: 2022Q2

REPORT INFORMATION
  Report Type: Spontaneous
  Country: TG (occurrence: TG)
  Receive Date: 20220513
  Receipt Date: 20220513
  Transmission Date: 20220721
  Serious: Yes (Hospitalization, Disabling)
  Sender: FDA-Public Use
  Company Number: TG-MLMSERVICE-20220427-3479958-1

PATIENT
  Age: 14 Day
  Sex: Male

DRUGS (4)
  1. GENTAMICIN [Suspect]
     Active Substance: GENTAMICIN
     Indication: Neonatal infection
     Route: 030
  2. BETAMETHASONE [Suspect]
     Active Substance: BETAMETHASONE
     Indication: Neonatal infection
     Route: 030
  3. PHENOBARBITAL [Suspect]
     Active Substance: PHENOBARBITAL
     Indication: Neonatal infection
     Route: 030
  4. CEFTAZIDIME [Suspect]
     Active Substance: CEFTAZIDIME
     Indication: Neonatal infection
     Route: 030

REACTIONS (1)
  - Embolia cutis medicamentosa [Recovered/Resolved]
